FAERS Safety Report 6383377-X (Version None)
Quarter: 2009Q4

REPORT INFORMATION
  Report Type: 
  Country: None (occurrence: None)
  Receive Date: 20091001
  Receipt Date: 20070529
  Transmission Date: 20100525
  Serious: Yes (Other)
  Sender: FDA-Public Use
  Company Number: US-ASTRAZENECA-2006UW24148

PATIENT
  Age: 52 Year
  Sex: Female
  Weight: 106.6 kg

DRUGS (28)
  1. SEROQUEL [Suspect]
     Indication: DEPRESSION
     Dosage: UNKNOWN
     Route: 048
     Dates: start: 19980101, end: 20010101
  2. SEROQUEL [Suspect]
     Indication: BIPOLAR I DISORDER
     Dosage: UNKNOWN
     Route: 048
     Dates: start: 19980101, end: 20010101
  3. SEROQUEL [Suspect]
     Indication: BIPOLAR DISORDER
     Dosage: UNKNOWN
     Route: 048
     Dates: start: 19980101, end: 20010101
  4. SEROQUEL [Suspect]
     Indication: SLEEP DISORDER
     Dosage: UNKNOWN
     Route: 048
     Dates: start: 19980101, end: 20010101
  5. SEROQUEL [Suspect]
     Dosage: 25-300 MG
     Route: 048
     Dates: start: 20010513, end: 20050616
  6. SEROQUEL [Suspect]
     Dosage: 25-300 MG
     Route: 048
     Dates: start: 20010513, end: 20050616
  7. SEROQUEL [Suspect]
     Dosage: 25-300 MG
     Route: 048
     Dates: start: 20010513, end: 20050616
  8. SEROQUEL [Suspect]
     Dosage: 25-300 MG
     Route: 048
     Dates: start: 20010513, end: 20050616
  9. CLONAZEPAM [Concomitant]
     Dosage: 0.5-1 MG
     Dates: start: 20011203
  10. CLONAZEPAM [Concomitant]
     Dosage: TOTAL DAILY DOSE 5 MG
     Route: 048
     Dates: start: 20040101
  11. METHADONE HYDROCHLORIDE [Concomitant]
  12. TRAZODONE HYDROCHLORIDE / TRAZODONE [Concomitant]
     Indication: BIPOLAR DISORDER
     Dosage: 50-150 MG
     Route: 048
     Dates: start: 19990609
  13. TRAZODONE HYDROCHLORIDE / TRAZODONE [Concomitant]
     Indication: SLEEP DISORDER
     Dosage: 50-150 MG
     Route: 048
     Dates: start: 19990609
  14. CELEXA [Concomitant]
     Dates: start: 20011203
  15. DOXEPIN HYDROCHLORIDE [Concomitant]
     Dosage: 50-100 MG
     Dates: start: 20020325
  16. SERZONE [Concomitant]
     Dates: start: 20020801
  17. PREDNISONE TAB [Concomitant]
     Indication: INFLAMMATION
     Dosage: 5-20 MG
     Dates: start: 20020101
  18. DEPAKOTE [Concomitant]
     Dates: start: 20010108
  19. PROZAC [Concomitant]
     Indication: DEPRESSION
     Route: 048
     Dates: start: 19990609
  20. ZYPREXA [Concomitant]
     Dosage: 5-10 MG
     Route: 048
     Dates: start: 20010108
  21. PREVACID [Concomitant]
     Indication: DYSPEPSIA
     Dosage: 30-60 MG
     Route: 048
     Dates: start: 19990609
  22. LASIX [Concomitant]
     Dosage: 20-250 MG
     Dates: start: 20030303
  23. ZESTRIL [Concomitant]
     Indication: BLOOD PRESSURE
     Dosage: 5-10 MG
     Dates: start: 20010108
  24. LIPITOR [Concomitant]
     Dates: start: 20020801
  25. PREMARIN [Concomitant]
     Dosage: 0.125-0.625 MG
     Route: 048
     Dates: start: 20010108
  26. ADVAIR DISKUS 100/50 [Concomitant]
     Dosage: 25-50 MCG ONE PUFF TWO TIMES A DAY
     Route: 055
     Dates: start: 20040205
  27. LEXAPRO [Concomitant]
     Indication: DEPRESSION
     Dates: start: 20040827
  28. LEXAPRO [Concomitant]
     Indication: BIPOLAR DISORDER
     Dates: start: 20040827

REACTIONS (6)
  - DIABETES MELLITUS [None]
  - DIABETES MELLITUS INADEQUATE CONTROL [None]
  - HYPERGLYCAEMIA [None]
  - NEUROPATHY PERIPHERAL [None]
  - TYPE 1 DIABETES MELLITUS [None]
  - TYPE 2 DIABETES MELLITUS [None]
